FAERS Safety Report 24291298 (Version 1)
Quarter: 2024Q3

REPORT INFORMATION
  Report Type: Spontaneous
  Country: US (occurrence: None)
  Receive Date: 20240906
  Receipt Date: 20240906
  Transmission Date: 20241017
  Serious: No
  Sender: DOMPE FARMACEUTICI
  Company Number: US-FARMAPROD-202308-2415

PATIENT
  Age: 56 Year
  Sex: Female

DRUGS (6)
  1. OXERVATE [Suspect]
     Active Substance: CENEGERMIN-BKBJ
     Indication: Neurotrophic keratopathy
     Route: 047
     Dates: start: 20230810
  2. OXERVATE [Suspect]
     Active Substance: CENEGERMIN-BKBJ
  3. OXERVATE [Suspect]
     Active Substance: CENEGERMIN-BKBJ
  4. REFRESH P.M. [Concomitant]
     Active Substance: MINERAL OIL\PETROLATUM
     Dosage: 42.5-57.3%
  5. XIIDRA [Concomitant]
     Active Substance: LIFITEGRAST
  6. DULOXETINE HYDROCHLORIDE [Concomitant]
     Active Substance: DULOXETINE HYDROCHLORIDE

REACTIONS (8)
  - Eye pain [Recovered/Resolved]
  - Ocular discomfort [Unknown]
  - Eyelid irritation [Unknown]
  - Ocular hyperaemia [Not Recovered/Not Resolved]
  - Eye inflammation [Recovering/Resolving]
  - Eye irritation [Unknown]
  - Wrong technique in product usage process [Recovered/Resolved]
  - Dry eye [Unknown]
